FAERS Safety Report 7975411 (Version 4)
Quarter: 2013Q4

REPORT INFORMATION
  Report Type: Report from Study
  Country: US (occurrence: US)
  Receive Date: 20110606
  Receipt Date: 20131219
  Transmission Date: 20140711
  Serious: Yes (Death, Hospitalization, Other)
  Sender: FDA-Public Use
  Company Number: US-ACTELION-A-US2011-49523

PATIENT
  Age: 73 Year
  Sex: Female
  Weight: 38.55 kg

DRUGS (2)
  1. TRACLEER [Suspect]
     Indication: PULMONARY ARTERIAL HYPERTENSION
     Dosage: UNK
     Route: 048
     Dates: start: 20090121, end: 20110727
  2. REVATIO [Concomitant]

REACTIONS (7)
  - Death [Fatal]
  - Dehydration [Unknown]
  - Weight decreased [Unknown]
  - Vomiting [Unknown]
  - Diarrhoea [Unknown]
  - Tachycardia [Unknown]
  - Anaemia [Unknown]
